FAERS Safety Report 17395995 (Version 1)
Quarter: 2020Q1

REPORT INFORMATION
  Report Type: Spontaneous
  Country: US (occurrence: US)
  Receive Date: 20200210
  Receipt Date: 20200210
  Transmission Date: 20200409
  Serious: No
  Sender: FDA-Public Use
  Company Number: US-VERTEX PHARMACEUTICALS-2020-001912

PATIENT
  Sex: Female

DRUGS (5)
  1. PULMOZYME [Concomitant]
     Active Substance: DORNASE ALFA
  2. TRIKAFTA [Suspect]
     Active Substance: ELEXACAFTOR\IVACAFTOR\TEZACAFTOR
     Indication: CYSTIC FIBROSIS
     Dosage: 200/ 100/ 150 MG QAM; 150 MG QPM
     Route: 048
     Dates: start: 20191106
  3. COLISTIMETHATE [Concomitant]
     Active Substance: COLISTIMETHATE SODIUM
  4. CREON [Concomitant]
     Active Substance: PANCRELIPASE AMYLASE\PANCRELIPASE LIPASE\PANCRELIPASE PROTEASE
  5. STERILE WATER [Concomitant]
     Active Substance: WATER

REACTIONS (1)
  - Diarrhoea [Unknown]
